FAERS Safety Report 8222567-8 (Version None)
Quarter: 2012Q1

REPORT INFORMATION
  Report Type: 
  Country: None (occurrence: None)
  Receive Date: 20120320
  Receipt Date: 20120316
  Transmission Date: 20120608
  Serious: Yes (Other)
  Sender: FDA-Public Use
  Company Number: CA-ABBOTT-12P-028-0916160-00

PATIENT
  Sex: Female

DRUGS (1)
  1. HUMIRA [Suspect]
     Indication: PSORIATIC ARTHROPATHY
     Route: 058
     Dates: start: 20110520, end: 20110601

REACTIONS (5)
  - DRUG INEFFECTIVE [None]
  - CELLULITIS [None]
  - HYPOKINESIA [None]
  - ULCER [None]
  - PERIPHERAL VASCULAR DISORDER [None]
